FAERS Safety Report 9989233 (Version 2)
Quarter: 2014Q1

REPORT INFORMATION
  Report Type: Spontaneous
  Country: GB (occurrence: GB)
  Receive Date: 20140310
  Receipt Date: 20140320
  Transmission Date: 20141002
  Serious: Yes (Death)
  Sender: FDA-Public Use
  Company Number: GB-ASTRAZENECA-2014SE16435

PATIENT
  Sex: Male

DRUGS (1)
  1. ZOLADEX LA [Suspect]
     Indication: PROSTATE CANCER
     Route: 058

REACTIONS (1)
  - Death [Fatal]
